FAERS Safety Report 11463071 (Version 1)
Quarter: 2015Q3

REPORT INFORMATION
  Report Type: Report from Study
  Country: DE (occurrence: DE)
  Receive Date: 20150905
  Receipt Date: 20150905
  Transmission Date: 20151125
  Serious: Yes (Hospitalization)
  Sender: FDA-Public Use
  Company Number: DE-ABBVIE-15K-062-1406498-00

PATIENT
  Sex: Female

DRUGS (1)
  1. HUMIRA [Suspect]
     Active Substance: ADALIMUMAB
     Indication: PSORIATIC ARTHROPATHY
     Route: 058
     Dates: start: 20070220

REACTIONS (3)
  - Lip dry [Not Recovered/Not Resolved]
  - Eczema [Recovered/Resolved]
  - Lip pruritus [Not Recovered/Not Resolved]

NARRATIVE: CASE EVENT DATE: 2014
